FAERS Safety Report 17501156 (Version 2)
Quarter: 2020Q3

REPORT INFORMATION
  Report Type: Spontaneous
  Country: NI (occurrence: NI)
  Receive Date: 20200305
  Receipt Date: 20200428
  Transmission Date: 20201104
  Serious: Yes (Death, Other)
  Sender: FDA-Public Use
  Company Number: NI-GLAXOSMITHKLINE-NI2020038432

PATIENT
  Age: 57 Day
  Sex: Female

DRUGS (3)
  1. FOLIC ACID. [Suspect]
     Active Substance: FOLIC ACID
     Indication: FOETAL EXPOSURE DURING PREGNANCY
     Dosage: UNK (MATERNAL DOSE: UNKNOWN)
     Route: 064
  2. DICLOFENAC [Suspect]
     Active Substance: DICLOFENAC
     Indication: FOETAL EXPOSURE DURING PREGNANCY
     Dosage: UNK (MATERNAL DOSE: UNKNOWN)
     Route: 064
  3. FERROUS SULFATE. [Suspect]
     Active Substance: FERROUS SULFATE
     Indication: FOETAL EXPOSURE DURING PREGNANCY
     Dosage: UNK (MATERNAL DOSE: UNKNOWN)
     Route: 064

REACTIONS (4)
  - Foetal exposure during pregnancy [Unknown]
  - Death [Fatal]
  - Premature baby [Unknown]
  - Foetal growth restriction [Unknown]
